FAERS Safety Report 9680923 (Version 3)
Quarter: 2013Q4

REPORT INFORMATION
  Report Type: Report from Study
  Country: US (occurrence: US)
  Receive Date: 20131111
  Receipt Date: 20131216
  Transmission Date: 20140711
  Serious: Yes (Death, Hospitalization, Other)
  Sender: FDA-Public Use
  Company Number: US-ROCHE-1300616

PATIENT
  Age: 84 Year
  Sex: Male
  Weight: 79.7 kg

DRUGS (12)
  1. TARCEVA [Suspect]
     Indication: NON-SMALL CELL LUNG CANCER
     Dosage: EVERY OTHER DAY
     Route: 048
     Dates: start: 20131011, end: 20131012
  2. TARCEVA [Suspect]
     Indication: METASTASES TO CENTRAL NERVOUS SYSTEM
  3. VALIUM [Suspect]
     Indication: INSOMNIA
     Dosage: TAKE AT BEDTIME
     Route: 048
  4. LONOX [Concomitant]
  5. CITALOPRAM [Concomitant]
  6. MIRALAX [Concomitant]
  7. KEPPRA [Concomitant]
  8. DECADRON [Concomitant]
  9. CELEXA (UNITED STATES) [Concomitant]
  10. NAMENDA [Concomitant]
  11. REMERON [Concomitant]
  12. ROXANOL [Concomitant]

REACTIONS (3)
  - Convulsion [Fatal]
  - Confusional state [Unknown]
  - Metastases to central nervous system [Unknown]
